FAERS Safety Report 5336906-9 (Version None)
Quarter: 2007Q2

REPORT INFORMATION
  Report Type: 
  Country: None (occurrence: None)
  Receive Date: 20070524
  Receipt Date: 20070524
  Transmission Date: 20071010
  Serious: Yes (Hospitalization)
  Sender: FDA-Public Use
  Company Number: None

PATIENT
  Sex: Female
  Weight: 67.9 kg

DRUGS (1)
  1. TEMOZOLOMIDE [Suspect]
     Dosage: 2860 MG

REACTIONS (6)
  - HYPERSOMNIA [None]
  - HYPOTENSION [None]
  - HYPOXIA [None]
  - METHAEMOGLOBINAEMIA [None]
  - SEPSIS [None]
  - VOMITING [None]
